FAERS Safety Report 4357587-7 (Version None)
Quarter: 2004Q2

REPORT INFORMATION
  Report Type: 
  Country: None (occurrence: None)
  Receive Date: 20040512
  Receipt Date: 20040512
  Transmission Date: 20050107
  Serious: Yes (Hospitalization)
  Sender: FDA-Public Use
  Company Number: None

PATIENT
  Age: 50 Year
  Sex: Male
  Weight: 78 kg

DRUGS (17)
  1. COUMADIN [Suspect]
     Indication: MITRAL VALVE REPLACEMENT
     Dosage: 3 MG DAILY ORAL
     Route: 048
     Dates: start: 20040114, end: 20040321
  2. AVELOX [Suspect]
     Indication: PNEUMONIA
     Dosage: 400 MG DAILY ORAL
     Route: 048
     Dates: start: 20040301, end: 20040314
  3. ASPIRIN [Concomitant]
  4. METOPROLOL [Concomitant]
  5. NORVASC [Concomitant]
  6. ZANTAC [Concomitant]
  7. FERROUS SULFATE TAB [Concomitant]
  8. COLACE [Concomitant]
  9. ALLOPURINOL TAB [Concomitant]
  10. LANTUS [Concomitant]
  11. HYDRALAZINE HCL [Concomitant]
  12. MULTI-VITAMIN [Concomitant]
  13. IMDUR [Concomitant]
  14. LIPITOR [Concomitant]
  15. PREDNISONE [Concomitant]
  16. PROGRAF [Concomitant]
  17. PERCOCET [Concomitant]

REACTIONS (1)
  - PULMONARY ALVEOLAR HAEMORRHAGE [None]
